FAERS Safety Report 9759117 (Version 1)
Quarter: 2013Q4

REPORT INFORMATION
  Report Type: Spontaneous
  Country: US (occurrence: None)
  Receive Date: 20131216
  Receipt Date: 20131216
  Transmission Date: 20140711
  Serious: Yes (Other)
  Sender: FDA-Public Use
  Company Number: 163-21880-12110747(0)

PATIENT
  Age: 69 Year
  Sex: Male
  Weight: 76 kg

DRUGS (1)
  1. REVLIMID (LENALIDOMIDE) (25 MILLIGRAM, CAPSULES) [Suspect]
     Indication: PLASMA CELL MYELOMA
     Dosage: 25 MG, 21 IN 21  D, PO?15 MG, 21 IN 21 D, PO ?10 MG, 21 IN 28 D, PO? ? ? ?

REACTIONS (7)
  - Insomnia [None]
  - Malaise [None]
  - Fatigue [None]
  - Nausea [None]
  - Dyspnoea [None]
  - Constipation [None]
  - Tumour marker increased [None]
